FAERS Safety Report 6084889-9 (Version None)
Quarter: 2009Q1

REPORT INFORMATION
  Report Type: 
  Country: None (occurrence: None)
  Receive Date: 20090220
  Receipt Date: 20090211
  Transmission Date: 20090719
  Serious: Yes (Other)
  Sender: FDA-Public Use
  Company Number: PHEH2009US01670

PATIENT
  Sex: Male
  Weight: 86.621 kg

DRUGS (10)
  1. AREDIA [Suspect]
     Dosage: 90 MG, UNK
     Dates: start: 20040806
  2. ZOMETA [Suspect]
     Indication: MULTIPLE MYELOMA
     Dosage: UNK
     Dates: start: 20040101
  3. ALKERAN [Concomitant]
  4. PREDNISONE [Concomitant]
  5. CIMETIDINE [Concomitant]
  6. EPOETIN ALFA [Concomitant]
  7. PLAVIX [Concomitant]
     Route: 048
  8. ATENOLOL [Concomitant]
     Route: 048
  9. LIPITOR [Concomitant]
     Route: 048
  10. LOVAZA [Concomitant]

REACTIONS (12)
  - DEBRIDEMENT [None]
  - ERYTHEMA [None]
  - JAW LESION EXCISION [None]
  - LESION EXCISION [None]
  - OSTEITIS [None]
  - OSTEOMYELITIS DRAINAGE [None]
  - OSTEONECROSIS [None]
  - PAIN IN JAW [None]
  - PERIODONTAL INFECTION [None]
  - SWELLING FACE [None]
  - TOOTH INFECTION [None]
  - TOOTHACHE [None]
